FAERS Safety Report 6356775-8 (Version None)
Quarter: 2009Q3

REPORT INFORMATION
  Report Type: 
  Country: None (occurrence: None)
  Receive Date: 20090911
  Receipt Date: 20090911
  Transmission Date: 20100115
  Serious: Yes (Other)
  Sender: FDA-Public Use
  Company Number: None

PATIENT
  Sex: Female
  Weight: 81.9 kg

DRUGS (15)
  1. FLONASE [Suspect]
     Indication: ASTHMA
     Dosage: FLUTICASONE NASAL SPRAY 1 SPRAY INTO EACH NASAL SPRAY
     Route: 045
     Dates: start: 20090401
  2. NORVIR [Suspect]
     Indication: HIV INFECTION
     Dosage: RITONAVIR 100MG 1 DAILY PO
     Route: 048
     Dates: start: 20090326
  3. ADVAIR DISKUS 100/50 [Suspect]
  4. PROAIR HFA [Concomitant]
  5. SINGULAIR [Concomitant]
  6. CETIRIZINE HCL [Concomitant]
  7. BENADRYL [Concomitant]
  8. TRUVADA [Concomitant]
  9. BACTRIM DS [Concomitant]
  10. FLUCONAZOLE [Concomitant]
  11. SEROQUEL [Concomitant]
  12. LITHIUM CARBONATE [Concomitant]
  13. LIPITOR [Concomitant]
  14. CALTRATE-D [Concomitant]
  15. OMEPRAZOLE [Concomitant]

REACTIONS (8)
  - ADRENAL SUPPRESSION [None]
  - BLOOD CORTISOL DECREASED [None]
  - CUSHING'S SYNDROME [None]
  - DRUG INTERACTION [None]
  - DRUG LEVEL INCREASED [None]
  - DYSPHORIA [None]
  - IATROGENIC INJURY [None]
  - WHEEZING [None]
